FAERS Safety Report 4656758-X (Version None)
Quarter: 2005Q2

REPORT INFORMATION
  Report Type: 
  Country: None (occurrence: None)
  Receive Date: 20050506
  Receipt Date: 20050428
  Transmission Date: 20051028
  Serious: Yes (Death, Disabling, Other)
  Sender: FDA-Public Use
  Company Number: 2005-04-1062

PATIENT
  Age: 45 Year
  Sex: Male

DRUGS (3)
  1. INTRONA (INTERFERON ALFA-2B RECOMBINANT) INJECTABLE POWDER LIKE INTRON [Suspect]
     Indication: MALIGNANT MELANOMA
     Dosage: SEE IMAGE
     Dates: start: 19990926, end: 19991022
  2. INTRONA (INTERFERON ALFA-2B RECOMBINANT) INJECTABLE POWDER LIKE INTRON [Suspect]
     Indication: MALIGNANT MELANOMA
     Dosage: SEE IMAGE
     Dates: start: 19991001, end: 20000224
  3. RADIATION THERAPY NO DOSE FORM [Suspect]
     Indication: MALIGNANT MELANOMA
     Dosage: X-RAY THERAPY
     Dates: end: 19990801

REACTIONS (3)
  - CONDITION AGGRAVATED [None]
  - MALIGNANT MELANOMA [None]
  - MYELITIS [None]
